FAERS Safety Report 5327561-2 (Version None)
Quarter: 2007Q2

REPORT INFORMATION
  Report Type: 
  Country: None (occurrence: None)
  Receive Date: 20070222
  Receipt Date: 20061211
  Transmission Date: 20071010
  Serious: Yes (Hospitalization)
  Sender: FDA-Public Use
  Company Number: 0610025

PATIENT
  Age: 6 Year
  Sex: Male
  Weight: 0.4536 kg

DRUGS (1)
  1. ORFADIN [Suspect]
     Indication: TYROSINAEMIA
     Dosage: 10 MILLIGRAM TWICE DAILY
     Dates: start: 20040515

REACTIONS (1)
  - LIVER TRANSPLANT [None]
